FAERS Safety Report 6861039-X (Version None)
Quarter: 2010Q3

REPORT INFORMATION
  Report Type: 
  Country: None (occurrence: None)
  Receive Date: 20100720
  Receipt Date: 20100706
  Transmission Date: 20110219
  Serious: Yes (Hospitalization)
  Sender: FDA-Public Use
  Company Number: US-ELI_LILLY_AND_COMPANY-US201007002560

PATIENT
  Age: 76 Year
  Sex: Female

DRUGS (6)
  1. FORTEO [Suspect]
     Dosage: 20 UG, DAILY (1/D)
     Dates: end: 20100629
  2. CELEBREX [Concomitant]
  3. SIMVASTATIN [Concomitant]
  4. BONIVA [Concomitant]
  5. CALCIUM [Concomitant]
  6. XANAX [Concomitant]

REACTIONS (4)
  - BASAL CELL CARCINOMA [None]
  - BLOOD COUNT ABNORMAL [None]
  - BLOOD SODIUM DECREASED [None]
  - VISUAL ACUITY REDUCED [None]
